FAERS Safety Report 8525913 (Version 2)
Quarter: 2012Q4

REPORT INFORMATION
  Report Type: 
  Country: FR (occurrence: FR)
  Receive Date: 20120423
  Receipt Date: 20120918
  Transmission Date: 20130627
  Serious: Yes (Other)
  Sender: FDA-Public Use
  Company Number: FR-ROCHE-1060902

PATIENT
  Sex: Male
  Weight: 99.11 kg

DRUGS (6)
  1. LUCENTIS [Suspect]
     Indication: AGE-RELATED MACULAR DEGENERATION
     Route: 050
     Dates: start: 20111212
  2. LUCENTIS [Suspect]
     Route: 050
     Dates: start: 20120112
  3. ALLOPURINOL [Concomitant]
  4. LEVOTHYROX [Concomitant]
  5. SIMVASTATIN [Concomitant]
  6. LEVOCABASTINE [Concomitant]

REACTIONS (1)
  - Macular oedema [Unknown]
